FAERS Safety Report 10045595 (Version 1)
Quarter: 2014Q1

REPORT INFORMATION
  Report Type: Report from Study
  Country: US (occurrence: US)
  Receive Date: 20140328
  Receipt Date: 20140328
  Transmission Date: 20141002
  Serious: Yes (Other)
  Sender: FDA-Public Use
  Company Number: US-ABBVIE-14P-163-1214823-00

PATIENT
  Age: 52 Year
  Sex: Male

DRUGS (10)
  1. HUMIRA [Suspect]
     Indication: CROHN^S DISEASE
     Dosage: ON FIRST DAY
     Dates: start: 201308, end: 201308
  2. HUMIRA [Suspect]
  3. HUMIRA [Suspect]
  4. METHADONE [Concomitant]
     Indication: ABDOMINAL PAIN
     Dosage: EVERY 6-8 HOURS, AS REQUIRED
  5. VENLAFAXINE [Concomitant]
     Indication: ANXIETY
  6. ATIVAN [Concomitant]
     Indication: ANXIETY
  7. PROBIOTIC [Concomitant]
     Indication: PRODUCT USED FOR UNKNOWN INDICATION
     Dosage: WITH MEALS
  8. MULTIVITAMIN [Concomitant]
     Indication: PRODUCT USED FOR UNKNOWN INDICATION
  9. FENTANYL [Concomitant]
     Indication: ABDOMINAL PAIN
     Dates: start: 201402
  10. FENTANYL [Concomitant]
     Indication: PROCEDURAL PAIN

REACTIONS (6)
  - Gastrointestinal stoma complication [Not Recovered/Not Resolved]
  - Crohn^s disease [Not Recovered/Not Resolved]
  - Pulmonary thrombosis [Not Recovered/Not Resolved]
  - Stoma site pain [Not Recovered/Not Resolved]
  - Abdominal pain [Not Recovered/Not Resolved]
  - Injection site pain [Not Recovered/Not Resolved]
